FAERS Safety Report 12435929 (Version 1)
Quarter: 2016Q2

REPORT INFORMATION
  Report Type: Spontaneous
  Country: US (occurrence: US)
  Receive Date: 20160604
  Receipt Date: 20160604
  Transmission Date: 20160815
  Serious: No
  Sender: FDA-Public Use
  Company Number: US-ASTRAZENECA-2016SE58585

PATIENT
  Age: 69 Year
  Sex: Female
  Weight: 72.6 kg

DRUGS (1)
  1. NEXIUM 24HR [Suspect]
     Active Substance: ESOMEPRAZOLE MAGNESIUM
     Indication: GASTRITIS
     Dosage: 2 TABLETS DAILY BEFORE BREAKFAST
     Route: 048

REACTIONS (5)
  - Condition aggravated [Unknown]
  - Product use issue [Not Recovered/Not Resolved]
  - Chest pain [Unknown]
  - Drug ineffective for unapproved indication [Unknown]
  - Product label issue [Unknown]
